FAERS Safety Report 4945821-1 (Version None)
Quarter: 2006Q1

REPORT INFORMATION
  Report Type: 
  Country: None (occurrence: None)
  Receive Date: 20060316
  Receipt Date: 20060314
  Transmission Date: 20060701
  Serious: Yes (Life-Threatening)
  Sender: FDA-Public Use
  Company Number: 2006CG00487

PATIENT
  Age: 24529 Day
  Sex: Female

DRUGS (3)
  1. ZESTORETIC [Suspect]
     Indication: HYPERTENSION
     Route: 048
     Dates: end: 20060203
  2. ZOCOR [Concomitant]
     Route: 048
  3. PLAVIX [Concomitant]
     Route: 048

REACTIONS (3)
  - COMA [None]
  - HYPOKALAEMIA [None]
  - HYPONATRAEMIA [None]
